FAERS Safety Report 7771161-1 (Version None)
Quarter: 2011Q3

REPORT INFORMATION
  Report Type: 
  Country: None (occurrence: None)
  Receive Date: 20110922
  Receipt Date: 20110317
  Transmission Date: 20111222
  Serious: Yes (Hospitalization)
  Sender: FDA-Public Use
  Company Number: US-ASTRAZENECA-2011SE15179

PATIENT
  Age: 81 Year
  Sex: Female
  Weight: 73 kg

DRUGS (3)
  1. SEROQUEL [Suspect]
     Indication: DEMENTIA
     Route: 048
     Dates: start: 20101201
  2. NEURONTIN [Concomitant]
  3. SEDATIVE [Suspect]

REACTIONS (4)
  - TREMOR [None]
  - ADVERSE DRUG REACTION [None]
  - OSTEOPOROSIS [None]
  - SKIN DISCOLOURATION [None]
